FAERS Safety Report 9736352 (Version 2)
Quarter: 2013Q4

REPORT INFORMATION
  Report Type: Spontaneous
  Country: US (occurrence: None)
  Receive Date: 20131204
  Receipt Date: 20131211
  Transmission Date: 20140711
  Serious: Yes (Death)
  Sender: FDA-Public Use
  Company Number: UTC-041156

PATIENT
  Age: 72 Year
  Sex: Female
  Weight: 79.54 kg

DRUGS (2)
  1. REMODULIN [Suspect]
     Indication: PULMONARY ARTERIAL HYPERTENSION
     Dosage: 112.32 UG/KG (0.078UG/KG, 1 IN 1 MIN), INTRAVENOUS DRIP
     Route: 041
     Dates: start: 20090710
  2. TRACLEER (BOSENTAN) (UNKNOWN) [Concomitant]

REACTIONS (3)
  - Death [None]
  - Right ventricular failure [None]
  - Renal failure [None]
